FAERS Safety Report 16382488 (Version 5)
Quarter: 2019Q3

REPORT INFORMATION
  Report Type: Spontaneous
  Country: JP (occurrence: JP)
  Receive Date: 20190603
  Receipt Date: 20190906
  Transmission Date: 20191004
  Serious: Yes (Death, Hospitalization, Other)
  Sender: FDA-Public Use
  Company Number: JP-009507513-1905JPN003579J

PATIENT
  Age: 65 Year
  Sex: Male
  Weight: 67 kg

DRUGS (16)
  1. CARBOPLATIN. [Suspect]
     Active Substance: CARBOPLATIN
     Indication: NON-SMALL CELL LUNG CANCER
     Dosage: 610 MILLIGRAM, Q3W
     Route: 041
     Dates: start: 20190417, end: 20190417
  2. PRAVASTATIN SODIUM. [Concomitant]
     Active Substance: PRAVASTATIN SODIUM
     Indication: THROMBOSIS PROPHYLAXIS
     Dosage: 10 MILLIGRAM, QD
     Route: 048
     Dates: start: 20190405, end: 20190523
  3. CARBOPLATIN. [Suspect]
     Active Substance: CARBOPLATIN
     Dosage: 490 MILLIGRAM, Q3W
     Route: 041
     Dates: start: 20190510, end: 20190510
  4. KEYTRUDA [Suspect]
     Active Substance: PEMBROLIZUMAB
     Indication: NON-SMALL CELL LUNG CANCER
     Dosage: 200 MILLIGRAM/KILOGRAM, Q3W
     Route: 041
     Dates: start: 20190417, end: 20190510
  5. ABRAXANE [Suspect]
     Active Substance: PACLITAXEL
     Indication: NON-SMALL CELL LUNG CANCER
     Dosage: 175 MILLIGRAM, QW
     Route: 041
     Dates: start: 20190417, end: 20190424
  6. LOXOPROFEN [Concomitant]
     Active Substance: LOXOPROFEN
     Indication: PAIN
     Dosage: 60 MILLIGRAM, TID
     Route: 048
     Dates: start: 20190405, end: 20190515
  7. LIXIANA [Concomitant]
     Active Substance: EDOXABAN TOSYLATE
     Indication: THROMBOSIS PROPHYLAXIS
     Dosage: 60 MILLIGRAM, QD
     Route: 048
     Dates: start: 20190405, end: 20190523
  8. NOVAMIN [Concomitant]
     Indication: PROPHYLAXIS OF NAUSEA AND VOMITING
     Dosage: 5 MILLIGRAM, TID
     Route: 048
     Dates: start: 20190416, end: 20190508
  9. ABRAXANE [Suspect]
     Active Substance: PACLITAXEL
     Dosage: 140 MILLIGRAM, QW
     Route: 041
     Dates: start: 20190510, end: 20190510
  10. OXYCONTIN [Concomitant]
     Active Substance: OXYCODONE HYDROCHLORIDE
     Indication: PAIN
     Dosage: 5 MILLIGRAM, BID
     Route: 048
     Dates: start: 20190416, end: 20190522
  11. OXINORM [Concomitant]
     Indication: PAIN
     Dosage: 2.5 MILLIGRAM, PRN
     Route: 048
     Dates: start: 20190416, end: 20190522
  12. VOLTAREN [Suspect]
     Active Substance: DICLOFENAC SODIUM
     Indication: PAIN
     Dosage: 35 MILLIGRAM, BID
     Route: 048
     Dates: start: 20190516, end: 20190520
  13. RISPERIDONE. [Suspect]
     Active Substance: RISPERIDONE
     Indication: DELIRIUM
     Dosage: 1 MILLIGRAM, PRN
     Route: 048
     Dates: start: 20190520, end: 20190523
  14. LANSOPRAZOLE. [Concomitant]
     Active Substance: LANSOPRAZOLE
     Indication: PROPHYLAXIS AGAINST GASTROINTESTINAL ULCER
     Dosage: 15 MILLIGRAM, QD
     Route: 048
     Dates: start: 20190405, end: 20190523
  15. LYRICA [Concomitant]
     Active Substance: PREGABALIN
     Indication: PAIN
     Dosage: 75 MILLIGRAM, BID
     Route: 048
     Dates: start: 20190405, end: 20190523
  16. MAGNESIUM OXIDE. [Concomitant]
     Active Substance: MAGNESIUM OXIDE
     Indication: CONSTIPATION PROPHYLAXIS
     Dosage: 330 MILLIGRAM, TID
     Route: 048
     Dates: start: 20190416, end: 20190511

REACTIONS (8)
  - Febrile neutropenia [Recovered/Resolved]
  - Fibrin degradation products increased [Unknown]
  - Enterocolitis [Recovered/Resolved]
  - Altered state of consciousness [Fatal]
  - Cystitis haemorrhagic [Recovered/Resolved]
  - Fibrin D dimer increased [Unknown]
  - Meningitis [Fatal]
  - Drug eruption [Unknown]

NARRATIVE: CASE EVENT DATE: 20190429
